FAERS Safety Report 6283974-6 (Version None)
Quarter: 2009Q3

REPORT INFORMATION
  Report Type: 
  Country: None (occurrence: None)
  Receive Date: 20090722
  Receipt Date: 20090714
  Transmission Date: 20100115
  Serious: Yes (Life-Threatening, Other)
  Sender: FDA-Public Use
  Company Number: ADR20371378-003

PATIENT
  Age: 54 Year
  Sex: Male

DRUGS (7)
  1. SIMVASTATIN [Suspect]
     Indication: BLOOD CHOLESTEROL INCREASED
     Dosage: ORAL
     Route: 048
  2. METFORMIN HYDROCHLORIDE [Suspect]
     Indication: DIABETES MELLITUS
     Dosage: ORAL
     Route: 048
  3. CODEINE PHOSPHATE AND ACETAMINOPHEN [Concomitant]
  4. HUMIRA (ADELIMUMAB) [Concomitant]
  5. LAMISIL [Concomitant]
  6. SILDENAFIL CITRATE [Concomitant]
  7. ASPIRIN [Concomitant]

REACTIONS (7)
  - EPSTEIN-BARR VIRUS ANTIBODY POSITIVE [None]
  - HODGKIN'S DISEASE [None]
  - ONYCHOMYCOSIS [None]
  - PYREXIA [None]
  - SCAR [None]
  - TOOTH ABSCESS [None]
  - WEIGHT INCREASED [None]
